FAERS Safety Report 13317885 (Version 1)
Quarter: 2017Q1

REPORT INFORMATION
  Report Type: Spontaneous
  Country: US (occurrence: US)
  Receive Date: 20170310
  Receipt Date: 20170310
  Transmission Date: 20170428
  Serious: No
  Sender: FDA-Public Use
  Company Number: US-PFIZER INC-2017097510

PATIENT
  Age: 87 Year
  Sex: Male
  Weight: 75 kg

DRUGS (2)
  1. VIAGRA [Suspect]
     Active Substance: SILDENAFIL CITRATE
     Dosage: 200 MG, UNK (I TOOK 2 100MG PILLS)
  2. METOPROLOL. [Concomitant]
     Active Substance: METOPROLOL
     Indication: BLOOD PRESSURE MEASUREMENT
     Dosage: 50 MG, UNK

REACTIONS (2)
  - Drug ineffective [Unknown]
  - Intentional product use issue [Unknown]
